FAERS Safety Report 5879912-8 (Version None)
Quarter: 2008Q3

REPORT INFORMATION
  Report Type: 
  Country: None (occurrence: None)
  Receive Date: 20080912
  Receipt Date: 20080902
  Transmission Date: 20090109
  Serious: Yes (Hospitalization, Other)
  Sender: FDA-Public Use
  Company Number: US-ELI_LILLY_AND_COMPANY-US200808004055

PATIENT
  Sex: Female

DRUGS (4)
  1. HUMALOG [Suspect]
     Indication: DIABETES MELLITUS
     Dosage: 3 U, 2/D
     Dates: start: 20070101
  2. LANTUS [Concomitant]
     Indication: DIABETES MELLITUS
     Dosage: 15 U, UNK
     Dates: start: 20070101
  3. GABAPENTIN [Concomitant]
  4. NOVOLOG [Concomitant]

REACTIONS (5)
  - BLINDNESS [None]
  - HOSPITALISATION [None]
  - HYPERGLYCAEMIA [None]
  - INTRAOCULAR LENS IMPLANT [None]
  - VITRECTOMY [None]
